FAERS Safety Report 18826352 (Version 1)
Quarter: 2021Q1

REPORT INFORMATION
  Report Type: Spontaneous
  Country: DE (occurrence: DE)
  Receive Date: 20210202
  Receipt Date: 20210202
  Transmission Date: 20210419
  Serious: Yes (Hospitalization)
  Sender: FDA-Public Use
  Company Number: DE-SK LIFE SCIENCE, INC-SKPVG-2020-000804

PATIENT

DRUGS (2)
  1. XCOPRI [Suspect]
     Active Substance: CENOBAMATE
     Indication: PRODUCT USED FOR UNKNOWN INDICATION
     Dosage: 150 MILLIGRAM, QD, AT NIGHT
     Route: 065
     Dates: start: 20200908
  2. CLOBAZAM. [Suspect]
     Active Substance: CLOBAZAM
     Indication: PRODUCT USED FOR UNKNOWN INDICATION
     Route: 065

REACTIONS (12)
  - Insomnia [Unknown]
  - Fatigue [Unknown]
  - Decreased appetite [Unknown]
  - Somnolence [Unknown]
  - Chills [Not Recovered/Not Resolved]
  - Asthenia [Unknown]
  - Disturbance in attention [Unknown]
  - Seizure [Not Recovered/Not Resolved]
  - Tension [Unknown]
  - Discomfort [Unknown]
  - Depressed mood [Not Recovered/Not Resolved]
  - Negative thoughts [Unknown]

NARRATIVE: CASE EVENT DATE: 20201218
